FAERS Safety Report 17524027 (Version 3)
Quarter: 2023Q1

REPORT INFORMATION
  Report Type: Other
  Country: JP (occurrence: JP)
  Receive Date: 20200311
  Receipt Date: 20230320
  Transmission Date: 20230418
  Serious: Yes (Other)
  Sender: FDA-Public Use
  Company Number: JP-CHUGAI-A2020013232ROCHE

PATIENT
  Age: 8 Month
  Sex: Female
  Weight: 4.828 kg

DRUGS (2)
  1. AVASTIN [Suspect]
     Active Substance: BEVACIZUMAB
     Indication: Astrocytoma, low grade
     Dosage: DOSAGE IS UNCERTAIN.
     Route: 065
  2. VINBLASTINE [Concomitant]
     Active Substance: VINBLASTINE

REACTIONS (2)
  - Hydrocephalus [Unknown]
  - Off label use [Unknown]
